FAERS Safety Report 4333517-9 (Version None)
Quarter: 2004Q1

REPORT INFORMATION
  Report Type: 
  Country: None (occurrence: None)
  Receive Date: 20040325
  Receipt Date: 20040223
  Transmission Date: 20041129
  Serious: No
  Sender: FDA-Public Use
  Company Number: USA040155744

PATIENT
  Age: 81 Year
  Sex: Female
  Weight: 45 kg

DRUGS (3)
  1. FORTEO [Suspect]
     Indication: OSTEOPOROSIS
     Dates: start: 20031230
  2. FOSAMAX [Concomitant]
  3. MULTIVITAMIN [Concomitant]

REACTIONS (3)
  - DIZZINESS [None]
  - INSOMNIA [None]
  - PAIN IN EXTREMITY [None]
